FAERS Safety Report 6423305-1 (Version None)
Quarter: 2009Q4

REPORT INFORMATION
  Report Type: 
  Country: None (occurrence: None)
  Receive Date: 20091022
  Receipt Date: 20090918
  Transmission Date: 20100525
  Serious: Yes (Other)
  Sender: FDA-Public Use
  Company Number: 2009RR-27025

PATIENT
  Age: 40 Year
  Sex: Male

DRUGS (5)
  1. TOPIRAMATE [Suspect]
     Indication: WEIGHT INCREASED
     Dosage: 100 MG, BID
  2. CLOZAPINE [Suspect]
     Dosage: 350 MG, BID : 400 MG, BID
  3. CITALOPRAM HYDROBROMIDE [Concomitant]
  4. ERYTHROMYCIN [Concomitant]
  5. AZITHROMYCIN [Concomitant]

REACTIONS (1)
  - DRUG WITHDRAWAL CONVULSIONS [None]
